FAERS Safety Report 25722921 (Version 1)
Quarter: 2025Q3

REPORT INFORMATION
  Report Type: Spontaneous
  Country: US (occurrence: US)
  Receive Date: 20250825
  Receipt Date: 20250825
  Transmission Date: 20251021
  Serious: No
  Sender: AMPHASTAR
  Company Number: US-Amphastar Pharmaceuticals, Inc.-2183161

PATIENT

DRUGS (5)
  1. GLUCAGON [Suspect]
     Active Substance: GLUCAGON
     Indication: Blood glucose decreased
  2. GLUCAGON [Suspect]
     Active Substance: GLUCAGON
  3. GLUCAGON [Suspect]
     Active Substance: GLUCAGON
  4. GLUCAGON [Suspect]
     Active Substance: GLUCAGON
  5. GLUCAGON [Suspect]
     Active Substance: GLUCAGON

REACTIONS (1)
  - No adverse event [Unknown]
